FAERS Safety Report 10703632 (Version 2)
Quarter: 2015Q1

REPORT INFORMATION
  Report Type: Report from Study
  Country: JP (occurrence: None)
  Receive Date: 20150108
  Receipt Date: 20150112
  Transmission Date: 20150721
  Serious: Yes (Hospitalization)
  Sender: FDA-Public Use
  Company Number: 2014FE03054

PATIENT
  Age: 85 Year
  Sex: Male

DRUGS (3)
  1. GONAX (DEGARELIX) POWDER AND SOLVENT FOR SOLUTION FOR INJECTION, 80MG [Suspect]
     Active Substance: DEGARELIX
     Indication: PROSTATE CANCER
     Route: 058
     Dates: start: 20130917, end: 20130917
  2. GONAX (DEGARELIX) POWDER AND SOLVENT FOR SOLUTION FOR INJECTION, 80MG [Suspect]
     Active Substance: DEGARELIX
     Route: 058
     Dates: start: 20130917, end: 20130917
  3. CASODEX [Concomitant]
     Active Substance: BICALUTAMIDE

REACTIONS (1)
  - Pneumonia aspiration [None]

NARRATIVE: CASE EVENT DATE: 20130924
